FAERS Safety Report 9436234 (Version 2)
Quarter: 2013Q4

REPORT INFORMATION
  Report Type: Report from Study
  Country: US (occurrence: US)
  Receive Date: 20130801
  Receipt Date: 20131215
  Transmission Date: 20140711
  Serious: Yes (Hospitalization)
  Sender: FDA-Public Use
  Company Number: US-JNJFOC-20130713471

PATIENT
  Age: 22 Year
  Sex: Female
  Weight: 68.8 kg

DRUGS (4)
  1. PARACETAMOL [Suspect]
     Route: 048
  2. PARACETAMOL [Suspect]
     Indication: SLEEP DISORDER THERAPY
     Route: 048
  3. OXYCODONE [Suspect]
     Indication: SLEEP DISORDER THERAPY
     Dosage: CHRONIC USE
     Route: 048
  4. OXYMORPHONE [Concomitant]
     Indication: SLEEP DISORDER THERAPY
     Dosage: CHRONIC USE
     Route: 048

REACTIONS (3)
  - Coma [Recovered/Resolved]
  - Off label use [Recovered/Resolved]
  - Transaminases increased [Recovered/Resolved]
